FAERS Safety Report 8380793-1 (Version None)
Quarter: 2012Q2

REPORT INFORMATION
  Report Type: 
  Country: None (occurrence: None)
  Receive Date: 20120523
  Receipt Date: 20110304
  Transmission Date: 20120825
  Serious: Yes (Other)
  Sender: FDA-Public Use
  Company Number: PHEH2011US013158

PATIENT
  Sex: Male

DRUGS (1)
  1. EXTAVIA [Suspect]
     Dates: start: 20110218, end: 20110330

REACTIONS (3)
  - HEMIPARESIS [None]
  - DEPRESSION [None]
  - HYPOAESTHESIA [None]
